FAERS Safety Report 7250904-X (Version None)
Quarter: 2011Q1

REPORT INFORMATION
  Report Type: 
  Country: None (occurrence: None)
  Receive Date: 20110128
  Receipt Date: 20110125
  Transmission Date: 20110831
  Serious: Yes (Death, Hospitalization)
  Sender: FDA-Public Use
  Company Number: A0902863A

PATIENT
  Age: 69 Year
  Sex: Male

DRUGS (4)
  1. CARAFATE [Concomitant]
     Dosage: 10CC SEE DOSAGE TEXT
  2. NEXIUM [Concomitant]
     Dosage: 40MGD PER DAY
  3. ZANTAC [Concomitant]
     Dosage: 75MG TWICE PER DAY
  4. ARIXTRA [Suspect]
     Dosage: 7.5MG UNKNOWN
     Route: 058
     Dates: start: 20101130, end: 20101205

REACTIONS (5)
  - METASTATIC GASTRIC CANCER [None]
  - HOSPICE CARE [None]
  - GASTROINTESTINAL HAEMORRHAGE [None]
  - ANAEMIA [None]
  - MELAENA [None]
